FAERS Safety Report 13412603 (Version 2)
Quarter: 2017Q4

REPORT INFORMATION
  Report Type: Spontaneous
  Country: US (occurrence: US)
  Receive Date: 20170406
  Receipt Date: 20171123
  Transmission Date: 20180320
  Serious: No
  Sender: FDA-Public Use
  Company Number: US-JNJFOC-20170308001

PATIENT
  Age: 18 Year
  Sex: Male

DRUGS (10)
  1. RISPERDAL M-TAB [Suspect]
     Active Substance: RISPERIDONE
     Indication: AGITATION
     Route: 048
  2. RISPERDAL [Suspect]
     Active Substance: RISPERIDONE
     Indication: SCHIZOPHRENIA
     Route: 048
     Dates: start: 20110227
  3. RISPERIDONE. [Suspect]
     Active Substance: RISPERIDONE
     Indication: SCHIZOPHRENIA
     Route: 048
     Dates: start: 20081112
  4. RISPERIDONE. [Suspect]
     Active Substance: RISPERIDONE
     Indication: SCHIZOPHRENIA
     Route: 048
  5. INVEGA [Suspect]
     Active Substance: PALIPERIDONE
     Indication: SCHIZOPHRENIA
     Route: 048
     Dates: start: 20090415
  6. RISPERDAL [Suspect]
     Active Substance: RISPERIDONE
     Indication: SCHIZOPHRENIA
     Route: 048
     Dates: start: 20091221
  7. RISPERDAL [Suspect]
     Active Substance: RISPERIDONE
     Indication: SCHIZOPHRENIA
     Dosage: 1 MG IN AM AND 2 MG IN NIGHT
     Route: 048
     Dates: start: 20080813, end: 20090901
  8. RISPERIDONE. [Suspect]
     Active Substance: RISPERIDONE
     Indication: SCHIZOPHRENIA
     Dosage: 1 MG AND 2 MG
     Route: 048
     Dates: start: 20080828, end: 20131230
  9. RISPERIDONE. [Suspect]
     Active Substance: RISPERIDONE
     Indication: SCHIZOPHRENIA
     Dosage: 1 MG IN AM AND 2 MG AT NIGHT
     Route: 048
     Dates: start: 20080825, end: 20101106
  10. RISPERDAL CONSTA [Suspect]
     Active Substance: RISPERIDONE
     Indication: SCHIZOPHRENIA
     Route: 030
     Dates: start: 20090517, end: 20120618

REACTIONS (3)
  - Gynaecomastia [Unknown]
  - Emotional disorder [Unknown]
  - Obesity [Unknown]

NARRATIVE: CASE EVENT DATE: 20090612
